FAERS Safety Report 10161623 (Version 4)
Quarter: 2014Q2

REPORT INFORMATION
  Report Type: Spontaneous
  Country: JP (occurrence: JP)
  Receive Date: 20140509
  Receipt Date: 20140616
  Transmission Date: 20141212
  Serious: Yes (Other)
  Sender: FDA-Public Use
  Company Number: JP-ROCHE-1394553

PATIENT
  Age: 67 Year
  Sex: Female

DRUGS (7)
  1. BONVIVA [Suspect]
     Indication: OSTEOPOROSIS
     Route: 042
     Dates: start: 20140419
  2. TENORMIN [Concomitant]
     Route: 048
     Dates: start: 20100918
  3. BAYASPIRIN [Concomitant]
     Route: 048
     Dates: start: 20111128
  4. VASOLAN [Concomitant]
     Route: 048
     Dates: start: 20111217
  5. GASTER D [Concomitant]
     Route: 048
     Dates: start: 20120114
  6. WARFARIN [Concomitant]
     Route: 048
     Dates: start: 20120421
  7. HALCION [Concomitant]
     Route: 048
     Dates: start: 20100918

REACTIONS (6)
  - Arthralgia [Not Recovered/Not Resolved]
  - Cough [Not Recovered/Not Resolved]
  - Productive cough [Not Recovered/Not Resolved]
  - Dyspnoea [Not Recovered/Not Resolved]
  - Myalgia [Unknown]
  - Malaise [Unknown]
